FAERS Safety Report 16990380 (Version 1)
Quarter: 2019Q4

REPORT INFORMATION
  Report Type: Spontaneous
  Country: MX (occurrence: MX)
  Receive Date: 20191104
  Receipt Date: 20191104
  Transmission Date: 20200122
  Serious: Yes (Hospitalization, Other)
  Sender: FDA-Public Use
  Company Number: MX-VIFOR (INTERNATIONAL) INC.-VIT-2019-11669

PATIENT
  Age: 57 Year
  Sex: Female

DRUGS (4)
  1. MIRCERA [Suspect]
     Active Substance: METHOXY POLYETHYLENE GLYCOL-EPOETIN BETA
     Dates: start: 20191020
  2. MYRRH [Concomitant]
     Active Substance: MYRRH
     Dosage: SINGLE DOSE USED
     Dates: start: 201906
  3. MIRCERA [Suspect]
     Active Substance: METHOXY POLYETHYLENE GLYCOL-EPOETIN BETA
     Indication: NEPHROGENIC ANAEMIA
     Route: 058
     Dates: start: 201906
  4. MIRCERA [Suspect]
     Active Substance: METHOXY POLYETHYLENE GLYCOL-EPOETIN BETA
     Dates: start: 2019

REACTIONS (3)
  - Product dose omission [Unknown]
  - Transplant rejection [Unknown]
  - Transplant [Unknown]

NARRATIVE: CASE EVENT DATE: 2019
